FAERS Safety Report 10413955 (Version 2)
Quarter: 2014Q3

REPORT INFORMATION
  Report Type: Spontaneous
  Country: CA (occurrence: CA)
  Receive Date: 20140827
  Receipt Date: 20140827
  Transmission Date: 20150326
  Serious: Yes (Hospitalization)
  Sender: FDA-Public Use
  Company Number: CA-BAXTER-2014BAX047729

PATIENT
  Age: 30 Year
  Sex: Male

DRUGS (2)
  1. POTASSIUM [Suspect]
     Active Substance: POTASSIUM
     Indication: HAEMODIALYSIS
     Route: 010
  2. 0.9% SODIUM CHLORIDE INJECTION [Suspect]
     Active Substance: SODIUM CHLORIDE
     Indication: RENAL FAILURE CHRONIC
     Dosage: 2 BAGS
     Route: 065

REACTIONS (2)
  - Haematoma [Not Recovered/Not Resolved]
  - Thrombosis [Recovered/Resolved]
